FAERS Safety Report 19898573 (Version 1)
Quarter: 2021Q3

REPORT INFORMATION
  Report Type: Spontaneous
  Country: DE (occurrence: DE)
  Receive Date: 20210929
  Receipt Date: 20210929
  Transmission Date: 20211014
  Serious: Yes (Hospitalization)
  Sender: FDA-Public Use
  Company Number: DE-MYLANLABS-2021M1066601

PATIENT
  Age: 79 Year
  Sex: Male

DRUGS (9)
  1. TRULICITY [Suspect]
     Active Substance: DULAGLUTIDE
     Indication: PRODUCT USED FOR UNKNOWN INDICATION
     Dosage: UNK, 1X PER WEEK, INJECTION/INFUSION SOLUTION
     Route: 058
  2. ACETYLSALICYLIC ACID [Concomitant]
     Active Substance: ASPIRIN
     Dosage: 100 MILLIGRAM, QD (100 MG, 0?1?0?0, TABLETTEN)
     Route: 048
  3. METFORMIN [Suspect]
     Active Substance: METFORMIN HYDROCHLORIDE
     Indication: PRODUCT USED FOR UNKNOWN INDICATION
     Dosage: 1000 MILLIGRAM, BID (1000 MG, 1?0?1?0, TABLETTEN)
     Route: 048
  4. RAMIPRIL HCT [Concomitant]
     Active Substance: HYDROCHLOROTHIAZIDE\RAMIPRIL
     Dosage: UNK UNK, QD (25|5 MG, 1?0?0?0, TABLETTEN)
     Route: 048
  5. EDOXABAN [Concomitant]
     Active Substance: EDOXABAN TOSYLATE
     Dosage: 30 MILLIGRAM, QD (30 MG, 1?0?0?0, TABLETTEN)
     Route: 048
  6. AMLODIPIN                          /00972401/ [Concomitant]
     Active Substance: AMLODIPINE BESYLATE
     Dosage: 10 MILLIGRAM, QD (10 MG, 1?0?0?0, TABLETTEN)
     Route: 048
  7. BISOPROLOL [Suspect]
     Active Substance: BISOPROLOL
     Indication: PRODUCT USED FOR UNKNOWN INDICATION
     Dosage: 5 MILLIGRAM, BID (5 MG, 1?0?1?0, TABLETTEN)
     Route: 048
  8. INSULIN GLARGINE [Suspect]
     Active Substance: INSULIN GLARGINE
     Indication: PRODUCT USED FOR UNKNOWN INDICATION
     Dosage: UNK, ACCORDING TO SCHEME, INJECTION/INFUSION SOLUTION
     Route: 058
  9. SIMVASTATIN. [Concomitant]
     Active Substance: SIMVASTATIN
     Dosage: 20 MILLIGRAM, QD (20 MG, 0?0?1?0, TABLETTEN)
     Route: 048

REACTIONS (2)
  - Acute respiratory failure [Unknown]
  - Somnolence [Unknown]
